FAERS Safety Report 8514547 (Version 2)
Quarter: 2012Q4

REPORT INFORMATION
  Report Type: 
  Country: US (occurrence: US)
  Receive Date: 20120416
  Receipt Date: 20121122
  Transmission Date: 20130627
  Serious: No
  Sender: FDA-Public Use
  Company Number: US-B.I. PHARMACEUTICALS,INC./RIDGEFIELD-2012-BP-07064BP

PATIENT
  Age: 72 None
  Sex: Female

DRUGS (12)
  1. PRADAXA [Suspect]
     Indication: CEREBROVASCULAR ACCIDENT PROPHYLAXIS
     Dosage: 150 mg
     Route: 048
     Dates: start: 20111213
  2. PRADAXA [Suspect]
     Indication: ATRIAL FIBRILLATION
  3. ALEVE [Concomitant]
     Indication: RHEUMATOID ARTHRITIS
     Dosage: 440 mg
     Route: 048
  4. COREG [Concomitant]
     Indication: HYPERTENSION
     Dosage: 25 mg
     Route: 048
  5. CRESTOR [Concomitant]
     Indication: BLOOD CHOLESTEROL INCREASED
     Dosage: 10 mg
     Route: 048
  6. GABAPENTIN [Concomitant]
     Indication: NEURALGIA
     Dosage: 300 mg
     Route: 048
  7. GLIPIZIDE [Concomitant]
     Indication: DIABETES MELLITUS
     Dosage: 20 mg
     Route: 048
  8. LEVEMIR [Concomitant]
     Indication: DIABETES MELLITUS
     Route: 058
  9. LISINOPRIL [Concomitant]
     Indication: HYPERTENSION
     Dosage: 25 mg
     Route: 048
  10. MAG OX [Concomitant]
     Indication: HYPOMAGNESAEMIA
     Dosage: 800 mg
     Route: 048
  11. NOVOLOG [Concomitant]
     Indication: DIABETES MELLITUS
     Route: 058
  12. TRIAMTERENE [Concomitant]
     Dosage: 37.5 mg
     Route: 048

REACTIONS (4)
  - Vessel perforation [Not Recovered/Not Resolved]
  - Muscular weakness [Not Recovered/Not Resolved]
  - Paraesthesia [Unknown]
  - Gait disturbance [Unknown]
